FAERS Safety Report 4710480-X (Version None)
Quarter: 2005Q3

REPORT INFORMATION
  Report Type: 
  Country: None (occurrence: None)
  Receive Date: 20050711
  Receipt Date: 20050703
  Transmission Date: 20060218
  Serious: Yes (Hospitalization)
  Sender: FDA-Public Use
  Company Number: BR-JNJFOC-20050701235

PATIENT
  Age: 3 Year
  Sex: Female

DRUGS (2)
  1. HALDOL [Suspect]
     Route: 049
  2. BIPERIDEN HYDROCHLORIDE TAB [Suspect]
     Route: 049

REACTIONS (3)
  - ACCIDENTAL EXPOSURE [None]
  - SOMNOLENCE [None]
  - TREMOR [None]
